FAERS Safety Report 12809455 (Version 2)
Quarter: 2016Q4

REPORT INFORMATION
  Report Type: Spontaneous
  Country: JP (occurrence: JP)
  Receive Date: 20161005
  Receipt Date: 20161018
  Transmission Date: 20170207
  Serious: No
  Sender: FDA-Public Use
  Company Number: JP-ROCHE-1838583

PATIENT
  Age: 67 Year
  Sex: Female
  Weight: 53 kg

DRUGS (5)
  1. PREDONINE [Concomitant]
     Active Substance: PREDNISOLONE\PREDNISOLONE ACETATE\PREDNISOLONE SODIUM SUCCINATE
     Indication: RHEUMATOID ARTHRITIS
     Dosage: AMOUNT OF 1 ONCE ADMINISTRATION: 50 (UNIT UNCERTAINTY)
     Route: 042
     Dates: start: 20160901, end: 20160927
  2. PREDONINE [Concomitant]
     Active Substance: PREDNISOLONE\PREDNISOLONE ACETATE\PREDNISOLONE SODIUM SUCCINATE
     Indication: RHEUMATOID ARTHRITIS
     Dosage: DOSAGE IS UNCERTAIN.
     Route: 042
     Dates: start: 2016
  3. GASTER [Concomitant]
     Active Substance: FAMOTIDINE
     Indication: PROPHYLAXIS
     Dosage: AMOUNT OF 1 ONCE ADMINISTRATION: 10 (UNIT UNCERTAINTY)
     Route: 042
     Dates: start: 20160915, end: 20160927
  4. ACTEMRA [Suspect]
     Active Substance: TOCILIZUMAB
     Indication: RHEUMATOID ARTHRITIS
     Route: 041
     Dates: start: 20160920, end: 20160920
  5. SODIUM BICARBONATE. [Concomitant]
     Active Substance: SODIUM BICARBONATE
     Indication: RHEUMATOID ARTHRITIS
     Dosage: AMOUNT OF 1 ONCE ADMINISTRATION: 1 (UNIT UNCERTAINTY)
     Route: 048
     Dates: start: 20160906

REACTIONS (1)
  - Auditory disorder [Not Recovered/Not Resolved]

NARRATIVE: CASE EVENT DATE: 20160921
